FAERS Safety Report 6593451-0 (Version None)
Quarter: 2010Q1

REPORT INFORMATION
  Report Type: 
  Country: None (occurrence: None)
  Receive Date: 20100222
  Receipt Date: 20090506
  Transmission Date: 20100710
  Serious: No
  Sender: FDA-Public Use
  Company Number: US-BRISTOL-MYERS SQUIBB COMPANY-14606024

PATIENT
  Age: 65 Year
  Sex: Female

DRUGS (15)
  1. ORENCIA [Suspect]
     Indication: RHEUMATOID ARTHRITIS
     Dosage: ALSO RECEIVED ON 01-APR-2009 AND 29APR2009
     Route: 042
     Dates: start: 20080901
  2. CELLCEPT [Concomitant]
     Dosage: 2 TABS;DURATION OVER A YEAR
     Route: 048
  3. CALCIUM [Concomitant]
     Dosage: 1 TABS; DURATION FOR YEARS
     Route: 048
  4. FLONASE [Concomitant]
     Dosage: 1 DF = 2 SPRAYS;DURATION ABOUT 8YEARS
     Route: 045
  5. ADVAIR DISKUS 100/50 [Concomitant]
     Dosage: 1 DF = 250-50 1 SPRAY ;ORAL INHALATION FOR ABOUT 5 YEARS
  6. NORTRIPTYLINE HCL [Concomitant]
     Indication: PROPHYLAXIS
     Dosage: 3 TABS; DURATION ABOUT 5 YEARS
     Route: 048
  7. BACLOFEN [Concomitant]
     Dosage: 1 TABS; DURATION ABOUT 10YEARS
     Route: 048
  8. FOLTX [Concomitant]
     Dosage: 1 DF = 1(UNITS NOT SPECIFIED);DURATION FOR ABOUT 5 YEARS
     Route: 048
  9. PAXIL [Concomitant]
     Dosage: DURATION FOR ABOUT 10YEARS
     Route: 048
  10. DIOVAN [Concomitant]
     Dosage: 1 TABS ; DURATION FOR ABOUT 4 YEARS
     Route: 048
  11. TEKTURNA [Concomitant]
     Dosage: DURATION FOR ABOUT 4 MONTHS
     Route: 048
  12. ARIMIDEX [Concomitant]
     Dosage: DURATION FOR ABOUT 4 AND HALF YEARS
     Route: 048
  13. ZYRTEC [Concomitant]
     Indication: HYPERSENSITIVITY
     Dosage: ZYRTEC OTC
     Route: 048
  14. MULTIPLE VITAMINS [Concomitant]
     Dosage: MULTIPLE VITAMIN WITH MINERAL
     Route: 048
  15. AMOXICILLIN [Concomitant]
     Dosage: 4 TABS TAKEN PER 1 HR.

REACTIONS (2)
  - DRUG ADMINISTRATION ERROR [None]
  - DRUG INEFFECTIVE [None]
